FAERS Safety Report 8198430-8 (Version None)
Quarter: 2012Q1

REPORT INFORMATION
  Report Type: 
  Country: None (occurrence: None)
  Receive Date: 20120309
  Receipt Date: 20120302
  Transmission Date: 20120608
  Serious: Yes (Hospitalization)
  Sender: FDA-Public Use
  Company Number: PHHY2012GB018344

PATIENT

DRUGS (8)
  1. AZATHIOPRINE [Concomitant]
  2. OMEPRAZOLE [Concomitant]
  3. SALMETEROL [Concomitant]
  4. LOSARTAN POTASSIUM [Suspect]
     Route: 048
     Dates: start: 20111201, end: 20120208
  5. ALBUTEROL [Concomitant]
  6. BECLOMETHASONE DIPROPIONATE [Concomitant]
  7. PROPRANOLOL [Concomitant]
     Dosage: UNK
     Dates: start: 20111201
  8. CODEINE SULFATE [Concomitant]

REACTIONS (8)
  - YELLOW SKIN [None]
  - NAUSEA [None]
  - PRURITUS [None]
  - OCULAR ICTERUS [None]
  - LIVER FUNCTION TEST ABNORMAL [None]
  - LIVER INJURY [None]
  - HEPATITIS [None]
  - VOMITING [None]
